FAERS Safety Report 20874283 (Version 1)
Quarter: 2022Q2

REPORT INFORMATION
  Report Type: Spontaneous
  Country: GB (occurrence: GB)
  Receive Date: 20220525
  Receipt Date: 20220525
  Transmission Date: 20220721
  Serious: Yes (Other)
  Sender: FDA-Public Use
  Company Number: GB-PFIZER INC-202200748021

PATIENT
  Age: 7 Year
  Sex: Female

DRUGS (2)
  1. METHYLPREDNISOLONE [Suspect]
     Active Substance: METHYLPREDNISOLONE
     Indication: Nephrotic syndrome
     Dosage: 2 MG/KG, DAILY
  2. RUXOLITINIB [Suspect]
     Active Substance: RUXOLITINIB
     Indication: Nephrotic syndrome
     Dosage: 2 MG/KG, DAILY

REACTIONS (2)
  - Cytomegalovirus infection [Unknown]
  - Immunosuppression [Unknown]
